FAERS Safety Report 4829045-4 (Version None)
Quarter: 2005Q4

REPORT INFORMATION
  Report Type: 
  Country: None (occurrence: None)
  Receive Date: 20051027
  Receipt Date: 20050408
  Transmission Date: 20060501
  Serious: Yes (Other)
  Sender: FDA-Public Use
  Company Number: 200513002US

PATIENT

DRUGS (3)
  1. ARAVA [Suspect]
     Dates: end: 20050301
  2. BEXTRA [Concomitant]
  3. HYDROXYCHLOROQUINE SULFATE (PLAQUENIL) [Concomitant]

REACTIONS (4)
  - DYSPNOEA [None]
  - LUNG INFILTRATION [None]
  - OXYGEN SATURATION DECREASED [None]
  - RASH [None]
